FAERS Safety Report 12519952 (Version 3)
Quarter: 2016Q3

REPORT INFORMATION
  Report Type: Spontaneous
  Country: GB (occurrence: GB)
  Receive Date: 20160630
  Receipt Date: 20160912
  Transmission Date: 20161109
  Serious: Yes (Other)
  Sender: FDA-Public Use
  Company Number: GB-TEVA-671477ACC

PATIENT
  Age: 22 Year
  Sex: Female

DRUGS (5)
  1. ST JOHNS WORT [Concomitant]
     Active Substance: ST. JOHN^S WORT
     Indication: PRODUCT USED FOR UNKNOWN INDICATION
     Dosage: UNK
     Route: 065
     Dates: start: 200205
  2. SEROXAT [Suspect]
     Active Substance: PAROXETINE HYDROCHLORIDE
     Indication: PRODUCT USED FOR UNKNOWN INDICATION
     Dosage: UNK
     Route: 065
     Dates: start: 19981001
  3. SEROXAT [Suspect]
     Active Substance: PAROXETINE HYDROCHLORIDE
     Dosage: 30 MG, UNK
     Route: 065
     Dates: start: 19990201, end: 20001116
  4. PAROXETINE HYDROCHLORIDE. [Suspect]
     Active Substance: PAROXETINE HYDROCHLORIDE
     Indication: DEPRESSION
     Dosage: UNK
     Route: 065
     Dates: start: 19981001, end: 20030930
  5. PAROXETINE HYDROCHLORIDE. [Suspect]
     Active Substance: PAROXETINE HYDROCHLORIDE
     Indication: ANXIETY

REACTIONS (34)
  - Post-traumatic stress disorder [Unknown]
  - Headache [Unknown]
  - Sleep disorder [Unknown]
  - Panic reaction [Unknown]
  - Suicidal ideation [Recovered/Resolved]
  - Dizziness [Unknown]
  - Bladder disorder [Unknown]
  - Fatigue [Unknown]
  - Loss of libido [Unknown]
  - Withdrawal syndrome [Unknown]
  - Muscle twitching [Unknown]
  - Feeling abnormal [Unknown]
  - Irritability [Unknown]
  - Paranoia [Unknown]
  - Tinnitus [Unknown]
  - Balance disorder [Unknown]
  - Malaise [Unknown]
  - Anxiety [Unknown]
  - Asthenia [Unknown]
  - Mood swings [Unknown]
  - Dyspnoea [Unknown]
  - Tremor [Unknown]
  - Vision blurred [Unknown]
  - Tension headache [Unknown]
  - Emotional distress [Unknown]
  - Nervousness [Unknown]
  - Activities of daily living impaired [Unknown]
  - Depressed mood [Unknown]
  - Disturbance in attention [Unknown]
  - Oral discomfort [Unknown]
  - Paraesthesia [Unknown]
  - Nausea [Unknown]
  - Vertigo [Unknown]
  - Hyperventilation [Unknown]

NARRATIVE: CASE EVENT DATE: 19981101
